FAERS Safety Report 10342806 (Version 1)
Quarter: 2014Q3

REPORT INFORMATION
  Report Type: Spontaneous
  Country: US (occurrence: None)
  Receive Date: 20140723
  Receipt Date: 20140723
  Transmission Date: 20150326
  Serious: Yes (Other)
  Sender: FDA-Public Use
  Company Number: ADR-2014-01280

PATIENT
  Sex: Male

DRUGS (3)
  1. MORPHINE (INTRATHECAL) [Suspect]
     Active Substance: MORPHINE
  2. BACLOFEN INTRATHECAL [Suspect]
     Active Substance: BACLOFEN
     Indication: PAIN
  3. BUPIVACAINE (INTRATHECAL) 30 MG/ML [Suspect]
     Active Substance: BUPIVACAINE
     Indication: PAIN

REACTIONS (6)
  - Withdrawal syndrome [None]
  - Impaired driving ability [None]
  - Device dislocation [None]
  - Road traffic accident [None]
  - Unevaluable event [None]
  - Somnolence [None]
